FAERS Safety Report 5623742-9 (Version None)
Quarter: 2008Q1

REPORT INFORMATION
  Report Type: 
  Country: None (occurrence: None)
  Receive Date: 20080207
  Receipt Date: 20080107
  Transmission Date: 20080703
  Serious: Yes (Death, Hospitalization)
  Sender: FDA-Public Use
  Company Number: IMP_03446_2008

PATIENT
  Age: 43 Year
  Sex: Male

DRUGS (1)
  1. OXYCODONE HCL [Suspect]
     Indication: DRUG USE FOR UNKNOWN INDICATION
     Dosage: (40 TABLETS X 1 PARENTERAL)
     Route: 051

REACTIONS (28)
  - ACTIVATED PARTIAL THROMBOPLASTIN TIME PROLONGED [None]
  - ACUTE ABDOMEN [None]
  - AGGRESSION [None]
  - AGITATION [None]
  - ALANINE AMINOTRANSFERASE INCREASED [None]
  - AMMONIA INCREASED [None]
  - ASPARTATE AMINOTRANSFERASE INCREASED [None]
  - BLOOD ALKALINE PHOSPHATASE INCREASED [None]
  - BLOOD AMYLASE INCREASED [None]
  - BLOOD CREATINE INCREASED [None]
  - BLOOD FIBRINOGEN INCREASED [None]
  - BLOOD UREA INCREASED [None]
  - BODY TEMPERATURE DECREASED [None]
  - CARDIAC ARREST [None]
  - CONFUSIONAL STATE [None]
  - DRUG ABUSE [None]
  - DRUG TOXICITY [None]
  - GENERAL PHYSICAL HEALTH DETERIORATION [None]
  - HYPOTENSION [None]
  - INCORRECT ROUTE OF DRUG ADMINISTRATION [None]
  - INTERNATIONAL NORMALISED RATIO DECREASED [None]
  - MIOSIS [None]
  - POISONING [None]
  - PROTHROMBIN TIME PROLONGED [None]
  - RESPIRATORY ARREST [None]
  - RESPIRATORY RATE INCREASED [None]
  - URINE CANNABINOIDS INCREASED [None]
  - WHITE BLOOD CELL COUNT INCREASED [None]
